FAERS Safety Report 13668813 (Version 1)
Quarter: 2017Q2

REPORT INFORMATION
  Report Type: Spontaneous
  Country: US (occurrence: US)
  Receive Date: 20170620
  Receipt Date: 20170620
  Transmission Date: 20170830
  Serious: No
  Sender: FDA-Public Use
  Company Number: None

PATIENT
  Age: 78 Year
  Sex: Female
  Weight: 90.72 kg

DRUGS (1)
  1. PROMETHAZINE [Suspect]
     Active Substance: PROMETHAZINE\PROMETHAZINE HYDROCHLORIDE
     Dates: start: 20161206

REACTIONS (4)
  - Agitation [None]
  - Tardive dyskinesia [None]
  - Muscle twitching [None]
  - Product substitution issue [None]

NARRATIVE: CASE EVENT DATE: 20161206
